FAERS Safety Report 6323191-4 (Version None)
Quarter: 2009Q3

REPORT INFORMATION
  Report Type: 
  Country: None (occurrence: None)
  Receive Date: 20090824
  Receipt Date: 20090331
  Transmission Date: 20100115
  Serious: No
  Sender: FDA-Public Use
  Company Number: US-ABBOTT-09P-163-0566130-00

PATIENT
  Sex: Female
  Weight: 64.468 kg

DRUGS (2)
  1. NIASPAN [Suspect]
     Indication: BLOOD CHOLESTEROL INCREASED
     Dates: start: 20090301
  2. ACTONEL [Suspect]
     Indication: OSTEOPOROSIS

REACTIONS (2)
  - DRY SKIN [None]
  - PRURITUS [None]
